FAERS Safety Report 26153575 (Version 1)
Quarter: 2025Q4

REPORT INFORMATION
  Report Type: Report from Study
  Country: CA (occurrence: CA)
  Receive Date: 20251214
  Receipt Date: 20251214
  Transmission Date: 20260117
  Serious: Yes (Other)
  Sender: OTSUKA
  Company Number: CA-MMM-Otsuka-U3Q4Y9JL

PATIENT
  Sex: Male

DRUGS (3)
  1. TOLVAPTAN [Suspect]
     Active Substance: TOLVAPTAN
     Indication: Congenital cystic kidney disease
     Dosage: 90 MG, QD (IN THE MORNING)
     Route: 061
     Dates: start: 20161121
  2. TOLVAPTAN [Suspect]
     Active Substance: TOLVAPTAN
     Dosage: 30 MG, QD (8 HOURS LATER)
     Route: 061
     Dates: start: 20161121
  3. PREDNISONE [Suspect]
     Active Substance: PREDNISONE
     Indication: Ear disorder
     Dosage: UNK
     Route: 065

REACTIONS (3)
  - Blood iron decreased [Unknown]
  - Ear disorder [Unknown]
  - Blood glucose increased [Recovered/Resolved]

NARRATIVE: CASE EVENT DATE: 20250101
